FAERS Safety Report 17140984 (Version 5)
Quarter: 2020Q4

REPORT INFORMATION
  Report Type: Spontaneous
  Country: US (occurrence: US)
  Receive Date: 20191211
  Receipt Date: 20201130
  Transmission Date: 20210113
  Serious: Yes (Hospitalization)
  Sender: FDA-Public Use
  Company Number: US-PFIZER INC-2019523125

PATIENT
  Age: 76 Year
  Sex: Female
  Weight: 76.19 kg

DRUGS (8)
  1. PHENYTOIN SODIUM. [Suspect]
     Active Substance: PHENYTOIN SODIUM
     Indication: EPILEPSY
     Dosage: 100 MG CAP 3 OR 4 X DAY
  2. SECOBARBITAL [Suspect]
     Active Substance: SECOBARBITAL
     Dosage: UNK
  3. FISH OIL [Suspect]
     Active Substance: FISH OIL
     Dosage: UNK
  4. LOSARTAN. [Suspect]
     Active Substance: LOSARTAN
     Dosage: UNK
  5. ETHOSUXIMIDE. [Suspect]
     Active Substance: ETHOSUXIMIDE
     Dosage: 250 MG CAP 1-5 X DAY
  6. BUDESONIDE/FORMOTEROL FUMARATE [Suspect]
     Active Substance: BUDESONIDE\FORMOTEROL FUMARATE
     Dosage: UNK
  7. HYDROCHLOROTHIAZIDE. [Suspect]
     Active Substance: HYDROCHLOROTHIAZIDE
     Dosage: UNK
  8. PRAVASTATIN. [Suspect]
     Active Substance: PRAVASTATIN
     Dosage: UNK

REACTIONS (1)
  - Drug hypersensitivity [Recovered/Resolved]
